FAERS Safety Report 14160334 (Version 1)
Quarter: 2017Q4

REPORT INFORMATION
  Report Type: Spontaneous
  Country: US (occurrence: US)
  Receive Date: 20171103
  Receipt Date: 20171103
  Transmission Date: 20180321
  Serious: Yes (Hospitalization)
  Sender: FDA-Public Use
  Company Number: None

PATIENT
  Age: 2 Year
  Sex: Male
  Weight: 14.85 kg

DRUGS (2)
  1. CULTURELL KIDS [Concomitant]
  2. FLUCONAZOLE SUSPENSION [Suspect]
     Active Substance: FLUCONAZOLE
     Indication: FUNGAL TEST POSITIVE
     Route: 048
     Dates: start: 20171030, end: 20171031

REACTIONS (2)
  - Red man syndrome [None]
  - Hypersensitivity [None]

NARRATIVE: CASE EVENT DATE: 20171031
